FAERS Safety Report 6326085-3 (Version None)
Quarter: 2009Q3

REPORT INFORMATION
  Report Type: 
  Country: None (occurrence: None)
  Receive Date: 20090820
  Receipt Date: 20090810
  Transmission Date: 20100115
  Serious: Yes (Life-Threatening, Other)
  Sender: FDA-Public Use
  Company Number: GXKR2009CZ08503

PATIENT
  Age: 19 Year
  Sex: Female

DRUGS (4)
  1. DIAZEPAM [Suspect]
     Indication: GENERAL ANAESTHESIA
  2. FENTANYL [Suspect]
     Indication: GENERAL ANAESTHESIA
  3. THIOPENTAL SODIUM [Suspect]
     Indication: GENERAL ANAESTHESIA
  4. ATRACURIUM BESYLATE [Suspect]
     Indication: GENERAL ANAESTHESIA

REACTIONS (9)
  - AKINESIA [None]
  - ANAPHYLACTIC REACTION [None]
  - ARTERIAL THROMBOSIS [None]
  - CYANOSIS [None]
  - HYPOTENSION [None]
  - PULSE ABSENT [None]
  - SHOCK [None]
  - TACHYCARDIA [None]
  - VENTRICULAR HYPOKINESIA [None]
